FAERS Safety Report 21567550 (Version 1)
Quarter: 2022Q4

REPORT INFORMATION
  Report Type: Spontaneous
  Country: IT (occurrence: IT)
  Receive Date: 20221108
  Receipt Date: 20221108
  Transmission Date: 20230113
  Serious: Yes (Hospitalization, Other)
  Sender: FDA-Public Use
  Company Number: IT-009507513-2205ITA001513

PATIENT
  Age: 28 Year
  Sex: Female

DRUGS (3)
  1. INTERFERON ALFA-2B [Suspect]
     Active Substance: INTERFERON ALFA-2B
     Indication: Chronic myeloid leukaemia
     Dosage: UNK
  2. NILOTINIB [Suspect]
     Active Substance: NILOTINIB
     Indication: Chronic myeloid leukaemia
     Dosage: UNK
  3. BOSULIF [Concomitant]
     Active Substance: BOSUTINIB MONOHYDRATE
     Dosage: 500 MILLIGRAM
     Dates: start: 201511

REACTIONS (6)
  - Hypertension [Recovered/Resolved]
  - Caesarean section [Unknown]
  - Abdominal pain [Unknown]
  - Headache [Unknown]
  - Maternal exposure during breast feeding [Recovered/Resolved]
  - Maternal exposure during pregnancy [Recovered/Resolved]

NARRATIVE: CASE EVENT DATE: 20151021
